FAERS Safety Report 17353594 (Version 1)
Quarter: 2020Q1

REPORT INFORMATION
  Report Type: Spontaneous
  Country: BR (occurrence: BR)
  Receive Date: 20200131
  Receipt Date: 20200131
  Transmission Date: 20200409
  Serious: Yes (Other)
  Sender: FDA-Public Use
  Company Number: BR-ROCHE-2537398

PATIENT

DRUGS (1)
  1. XOLAIR [Suspect]
     Active Substance: OMALIZUMAB
     Indication: ASTHMA
     Dosage: UNK (START DATE WAS 5 YEARS AGO)
     Route: 065

REACTIONS (3)
  - Asthma [Unknown]
  - Drug dependence [Unknown]
  - Asthmatic crisis [Unknown]
